FAERS Safety Report 8334650-7 (Version None)
Quarter: 2012Q2

REPORT INFORMATION
  Report Type: 
  Country: None (occurrence: None)
  Receive Date: 20120503
  Receipt Date: 20110527
  Transmission Date: 20120825
  Serious: No
  Sender: FDA-Public Use
  Company Number: US-TEVA-2011002036

PATIENT
  Sex: Female
  Weight: 64.468 kg

DRUGS (2)
  1. INTRAUTERINE DEVICE [Concomitant]
  2. NUVIGIL [Suspect]
     Indication: NARCOLEPSY
     Dosage: 150 MILLIGRAM;
     Route: 048
     Dates: start: 20110421

REACTIONS (2)
  - LIMB DISCOMFORT [None]
  - IRRITABILITY [None]
